FAERS Safety Report 5481680-9 (Version None)
Quarter: 2007Q4

REPORT INFORMATION
  Report Type: 
  Country: None (occurrence: None)
  Receive Date: 20071010
  Receipt Date: 20071001
  Transmission Date: 20080405
  Serious: Yes (Other)
  Sender: FDA-Public Use
  Company Number: US-KINGPHARMUSA00001-K200700991

PATIENT

DRUGS (1)
  1. EPIPEN [Suspect]
     Indication: ANAPHYLAXIS TREATMENT
     Dosage: UNK, SINGLE
     Dates: start: 20070801, end: 20070801

REACTIONS (4)
  - ACCIDENTAL EXPOSURE [None]
  - INJECTION SITE ISCHAEMIA [None]
  - INJECTION SITE PALLOR [None]
  - SKELETAL INJURY [None]
